FAERS Safety Report 5984980-9 (Version None)
Quarter: 2008Q4

REPORT INFORMATION
  Report Type: 
  Country: None (occurrence: None)
  Receive Date: 20081208
  Receipt Date: 20081126
  Transmission Date: 20090506
  Serious: Yes (Death, Hospitalization)
  Sender: FDA-Public Use
  Company Number: CZ-CELGENEUS-217-21880-08090828

PATIENT
  Sex: Male
  Weight: 74 kg

DRUGS (7)
  1. REVLIMID [Suspect]
     Indication: MULTIPLE MYELOMA
     Route: 048
     Dates: start: 20080429, end: 20080716
  2. HELICID [Concomitant]
     Indication: GASTRIC ULCER
     Route: 065
     Dates: start: 20080818, end: 20080825
  3. BETALOC SR [Concomitant]
     Route: 065
     Dates: start: 20080818, end: 20080825
  4. TIAPRIDAL [Concomitant]
     Route: 065
     Dates: start: 20080818, end: 20080825
  5. MORPHINE [Concomitant]
     Indication: PAIN
     Route: 065
     Dates: start: 20080818, end: 20080825
  6. PAMBA [Concomitant]
     Route: 065
     Dates: start: 20080818, end: 20080825
  7. DIAZEPAM [Concomitant]
     Route: 065
     Dates: start: 20080818, end: 20080825

REACTIONS (4)
  - BRONCHOPNEUMONIA [None]
  - GASTRODUODENITIS [None]
  - MULTIPLE MYELOMA [None]
  - RENAL FAILURE [None]
